FAERS Safety Report 11239319 (Version 1)
Quarter: 2015Q3

REPORT INFORMATION
  Report Type: Spontaneous
  Country: US (occurrence: US)
  Receive Date: 20150706
  Receipt Date: 20150706
  Transmission Date: 20151125
  Serious: Yes (Life-Threatening)
  Sender: FDA-Public Use
  Company Number: US-MERCK-1506USA006272

PATIENT
  Age: 85 Year
  Sex: Male
  Weight: 69 kg

DRUGS (2)
  1. DAPTOMYCIN. [Suspect]
     Active Substance: DAPTOMYCIN
     Indication: POST PROCEDURAL INFECTION
     Dosage: 400 MG, Q24H
     Route: 042
     Dates: start: 20090724, end: 20090826
  2. DAPTOMYCIN. [Suspect]
     Active Substance: DAPTOMYCIN
     Dosage: 5.8 MG/KG, Q24H
     Route: 042
     Dates: start: 20090724, end: 20090826

REACTIONS (1)
  - Alveolitis allergic [Unknown]

NARRATIVE: CASE EVENT DATE: 20090827
